FAERS Safety Report 11086767 (Version 1)
Quarter: 2015Q2

REPORT INFORMATION
  Report Type: Spontaneous
  Country: None (occurrence: None)
  Receive Date: 20150501
  Receipt Date: 20150501
  Transmission Date: 20150821
  Serious: No
  Sender: FDA-Public Use
  Company Number: None

PATIENT
  Age: 53 Year
  Sex: Male
  Weight: 84.82 kg

DRUGS (1)
  1. CALCIPOTRIENE. [Suspect]
     Active Substance: CALCIPOTRIENE
     Route: 061
     Dates: start: 20150401, end: 20150430

REACTIONS (2)
  - Psoriasis [None]
  - Product substitution issue [None]

NARRATIVE: CASE EVENT DATE: 20150421
